FAERS Safety Report 19299277 (Version 1)
Quarter: 2021Q2

REPORT INFORMATION
  Report Type: Report from Study
  Country: CA (occurrence: CA)
  Receive Date: 20210525
  Receipt Date: 20210525
  Transmission Date: 20210717
  Serious: Yes (Other)
  Sender: FDA-Public Use
  Company Number: CA-JNJFOC-20210516084

PATIENT
  Sex: Female

DRUGS (1)
  1. REMICADE [Suspect]
     Active Substance: INFLIXIMAB
     Indication: CROHN^S DISEASE
     Route: 042

REACTIONS (12)
  - Dental caries [Unknown]
  - Fungal infection [Recovered/Resolved]
  - Feeling abnormal [Unknown]
  - Tongue disorder [Unknown]
  - Eczema [Unknown]
  - Bronchitis [Unknown]
  - Tooth fracture [Unknown]
  - Nausea [Unknown]
  - Crohn^s disease [Unknown]
  - Tongue coated [Unknown]
  - Polymenorrhoea [Unknown]
  - Abdominal discomfort [Unknown]
